FAERS Safety Report 20875180 (Version 1)
Quarter: 2022Q2

REPORT INFORMATION
  Report Type: Spontaneous
  Country: US (occurrence: US)
  Receive Date: 20220526
  Receipt Date: 20220526
  Transmission Date: 20220721
  Serious: No
  Sender: FDA-Public Use
  Company Number: US-UNITED THERAPEUTICS-UNT-2022-011317

PATIENT
  Age: 64 Year
  Sex: Female
  Weight: 62.585 kg

DRUGS (2)
  1. TYVASO [Suspect]
     Active Substance: TREPROSTINIL
     Indication: Pulmonary arterial hypertension
     Dosage: UNK
     Dates: start: 20220505
  2. TYVASO [Suspect]
     Active Substance: TREPROSTINIL
     Dosage: 18-72 ?G, QID
     Dates: start: 202205

REACTIONS (3)
  - Nausea [Unknown]
  - Hypotension [Unknown]
  - Fatigue [Unknown]

NARRATIVE: CASE EVENT DATE: 20220501
